FAERS Safety Report 25897852 (Version 1)
Quarter: 2025Q4

REPORT INFORMATION
  Report Type: Spontaneous
  Country: CA (occurrence: CA)
  Receive Date: 20251008
  Receipt Date: 20251008
  Transmission Date: 20260118
  Serious: Yes (Life-Threatening, Hospitalization, Other)
  Sender: PFIZER
  Company Number: CA-PFIZER INC-202500198743

PATIENT
  Age: 29 Year
  Sex: Female

DRUGS (12)
  1. LIDOCAINE HYDROCHLORIDE [Suspect]
     Active Substance: LIDOCAINE HYDROCHLORIDE
     Dosage: UNK
  2. BUPIVACAINE HYDROCHLORIDE [Suspect]
     Active Substance: BUPIVACAINE HYDROCHLORIDE
     Dosage: UNK
     Route: 008
  3. KETOROLAC TROMETHAMINE [Suspect]
     Active Substance: KETOROLAC TROMETHAMINE
     Dosage: UNK
  4. TRANEXAMIC ACID [Suspect]
     Active Substance: TRANEXAMIC ACID
     Dosage: UNK
  5. CEFAZOLIN [Suspect]
     Active Substance: CEFAZOLIN
     Dosage: UNK
     Route: 040
  6. FENTANYL [Suspect]
     Active Substance: FENTANYL
     Dosage: UNK
  7. ONDANSETRON [Suspect]
     Active Substance: ONDANSETRON
     Dosage: UNK
  8. ACETAMINOPHEN [Concomitant]
     Active Substance: ACETAMINOPHEN
     Dosage: UNK
  9. FUROSEMIDE [Concomitant]
     Active Substance: FUROSEMIDE
     Dosage: UNK
     Route: 065
  10. HYDROMORPHONE [Concomitant]
     Active Substance: HYDROMORPHONE
     Dosage: UNK
  11. PROPOFOL [Concomitant]
     Active Substance: PROPOFOL
     Dosage: UNK
     Route: 065
  12. SUCCINYLCHOLINE CHLORIDE [Concomitant]
     Active Substance: SUCCINYLCHOLINE CHLORIDE
     Dosage: UNK
     Route: 042

REACTIONS (5)
  - Anaphylactic reaction [Unknown]
  - Hypotension [Unknown]
  - Rash [Unknown]
  - Stridor [Unknown]
  - Tachypnoea [Unknown]
